FAERS Safety Report 24566913 (Version 2)
Quarter: 2024Q4

REPORT INFORMATION
  Report Type: Spontaneous
  Country: MX (occurrence: MX)
  Receive Date: 20241030
  Receipt Date: 20241122
  Transmission Date: 20250115
  Serious: Yes (Life-Threatening, Other)
  Sender: CSL BEHRING
  Company Number: MX-BEH-2024183354

PATIENT
  Sex: Male

DRUGS (5)
  1. HUMAN IMMUNOGLOBULIN G [Suspect]
     Active Substance: HUMAN IMMUNOGLOBULIN G
     Indication: Chronic inflammatory demyelinating polyradiculoneuropathy
     Dosage: UNK
     Route: 065
     Dates: start: 20241009, end: 202410
  2. HUMAN IMMUNOGLOBULIN G [Suspect]
     Active Substance: HUMAN IMMUNOGLOBULIN G
     Dosage: 13 VIALS
     Route: 065
     Dates: start: 202410
  3. HUMAN IMMUNOGLOBULIN G [Suspect]
     Active Substance: HUMAN IMMUNOGLOBULIN G
     Dosage: 52 VIALS NOT ALL VIALS WERE ADMINISTERED TO THIS PATIENT
     Route: 065
     Dates: start: 202410
  4. HUMAN IMMUNOGLOBULIN G [Suspect]
     Active Substance: HUMAN IMMUNOGLOBULIN G
     Dosage: 16 VIALS
     Route: 065
     Dates: start: 202410
  5. PREDNISONE [Concomitant]
     Active Substance: PREDNISONE

REACTIONS (3)
  - Anaphylactic shock [Unknown]
  - Erythema [Unknown]
  - Tremor [Unknown]

NARRATIVE: CASE EVENT DATE: 20241009
